FAERS Safety Report 8343243 (Version 2)
Quarter: 2014Q2

REPORT INFORMATION
  Report Type: Spontaneous
  Country: KR (occurrence: None)
  Receive Date: 20120109
  Receipt Date: 20140613
  Transmission Date: 20141212
  Serious: Yes (Death, Other)
  Sender: FDA-Public Use
  Company Number: KR-JNJFOC-20111212760

PATIENT
  Age: 26 Year
  Sex: Male
  Weight: 52 kg

DRUGS (6)
  1. DECITABINE [Suspect]
     Indication: MYELODYSPLASTIC SYNDROME
     Dosage: 20 MG/M2, INTRAVENOUS
     Route: 042
     Dates: start: 20100708, end: 20100712
  2. CIPROCTAN [Concomitant]
  3. SPORANOX [Concomitant]
  4. OXIRACETAM (OXIRACETAM) [Concomitant]
  5. VANCOMYCIN HYDROCHLORIDE (VANCOMYCIN HYDROCHLORIDE) [Concomitant]
  6. GRASIN (FILGRASTIM) UNSPECIFIED [Concomitant]

REACTIONS (7)
  - Infection [None]
  - Pyrexia [None]
  - Musculoskeletal stiffness [None]
  - Headache [None]
  - Neutropenia [None]
  - Acidosis [None]
  - Respiratory arrest [None]
